FAERS Safety Report 26060309 (Version 1)
Quarter: 2025Q4

REPORT INFORMATION
  Report Type: Report from Study
  Country: JP (occurrence: JP)
  Receive Date: 20251118
  Receipt Date: 20251118
  Transmission Date: 20260118
  Serious: Yes (Hospitalization)
  Sender: JOHNSON AND JOHNSON
  Company Number: JP-JNJFOC-20251039598

PATIENT
  Age: 75 Year
  Sex: Male
  Weight: 75 kg

DRUGS (24)
  1. ABIRATERONE ACETATE [Suspect]
     Active Substance: ABIRATERONE ACETATE
     Indication: Prostate cancer
     Route: 048
     Dates: start: 20230328, end: 20251015
  2. ABIRATERONE ACETATE [Suspect]
     Active Substance: ABIRATERONE ACETATE
     Route: 048
     Dates: start: 20251104
  3. ABEMACICLIB [Suspect]
     Active Substance: ABEMACICLIB
     Indication: Prostate cancer
     Route: 065
     Dates: start: 20230718, end: 20231221
  4. ABEMACICLIB [Suspect]
     Active Substance: ABEMACICLIB
     Route: 065
     Dates: start: 20231227, end: 20240216
  5. ABEMACICLIB [Suspect]
     Active Substance: ABEMACICLIB
     Route: 065
     Dates: start: 20240219, end: 20240227
  6. ABEMACICLIB [Suspect]
     Active Substance: ABEMACICLIB
     Route: 065
     Dates: start: 20230425, end: 20230616
  7. PREDNISOLONE [Suspect]
     Active Substance: PREDNISOLONE
     Indication: Prostate cancer
     Route: 065
     Dates: start: 20230425, end: 20251015
  8. PREDNISOLONE [Suspect]
     Active Substance: PREDNISOLONE
     Route: 065
  9. ANAGLIPTIN [Concomitant]
     Active Substance: ANAGLIPTIN
     Indication: Type 2 diabetes mellitus
     Dates: start: 20160305
  10. CERCINE [Concomitant]
     Active Substance: DIAZEPAM
     Indication: Depression
     Dates: start: 20170812
  11. SULPIRIDE [Concomitant]
     Active Substance: SULPIRIDE
     Indication: Depression
     Dates: start: 20180531
  12. ACETAMINOPHEN\APRONALIDE\CAFFEINE\PROPYPHENAZONE [Concomitant]
     Active Substance: ACETAMINOPHEN\APRONALIDE\CAFFEINE\PROPYPHENAZONE
     Indication: Product used for unknown indication
     Dates: start: 20171010
  13. LOXOPROFEN SODIUM [Concomitant]
     Active Substance: LOXOPROFEN SODIUM
     Indication: Headache
     Dates: start: 20230619
  14. LOXOPROFEN SODIUM [Concomitant]
     Active Substance: LOXOPROFEN SODIUM
     Indication: Osteoarthritis
     Dates: start: 20190322
  15. TAMSULOSIN HYDROCHLORIDE [Concomitant]
     Active Substance: TAMSULOSIN HYDROCHLORIDE
     Indication: Pollakiuria
     Dates: start: 20230131
  16. IPRAGLIFLOZIN L-PROLINE [Concomitant]
     Active Substance: IPRAGLIFLOZIN L-PROLINE
     Indication: Type 2 diabetes mellitus
     Dates: start: 20230506
  17. AMITIZA [Concomitant]
     Active Substance: LUBIPROSTONE
     Indication: Constipation
     Dates: start: 20230815
  18. RINDERON VG [Concomitant]
     Active Substance: BETAMETHASONE VALERATE\GENTAMICIN SULFATE
     Indication: Tinea infection
     Dates: start: 20231005
  19. ATOLANT [Concomitant]
     Indication: Tinea infection
     Dates: start: 20231005
  20. PL [Concomitant]
     Active Substance: ACETAMINOPHEN\CAFFEINE\PROMETHAZINE\SALICYLAMIDE
     Indication: Headache
     Dates: start: 20231205
  21. LEUPLIN [Concomitant]
     Active Substance: LEUPROLIDE ACETATE
     Indication: Prostate cancer
     Dates: start: 20231010
  22. CAMPHOR [Concomitant]
     Active Substance: CAMPHOR
     Indication: Epicondylitis
  23. KAKKONTO [EPHEDRA SPP. HERB;GLYCYRRHIZA SPP. ROOT;NEOLITSEA CASSIA BAR [Concomitant]
     Indication: Nasopharyngitis
  24. POTASSIUM ASPARTATE [Concomitant]
     Active Substance: POTASSIUM ASPARTATE
     Indication: Product used for unknown indication
     Dates: start: 20231010

REACTIONS (5)
  - Adrenal insufficiency [Recovered/Resolved]
  - COVID-19 pneumonia [Recovered/Resolved]
  - Pneumonia [Recovered/Resolved]
  - Nasopharyngitis [Unknown]
  - Vertigo positional [Unknown]

NARRATIVE: CASE EVENT DATE: 20230101
